FAERS Safety Report 11487671 (Version 1)
Quarter: 2015Q3

REPORT INFORMATION
  Report Type: Spontaneous
  Country: TR (occurrence: TR)
  Receive Date: 20150910
  Receipt Date: 20150910
  Transmission Date: 20151125
  Serious: Yes (Hospitalization)
  Sender: FDA-Public Use
  Company Number: TR-AUROBINDO-AUR-APL-2015-07788

PATIENT
  Age: 42 Year
  Sex: Male

DRUGS (1)
  1. QUETIAPINE 300MG [Suspect]
     Active Substance: QUETIAPINE
     Indication: BIPOLAR DISORDER
     Dosage: 300 MG, DAILY
     Route: 065

REACTIONS (16)
  - Loss of consciousness [Recovered/Resolved]
  - Eye movement disorder [Recovered/Resolved]
  - Sensory disturbance [Recovered/Resolved]
  - Dysarthria [Recovered/Resolved]
  - Fall [Recovered/Resolved]
  - Ataxia [Recovered/Resolved]
  - Brain stem stroke [Recovered/Resolved]
  - Gait disturbance [Recovered/Resolved]
  - Nystagmus [Recovered/Resolved]
  - Balance disorder [Recovered/Resolved]
  - VIth nerve paralysis [Recovered/Resolved]
  - Cerebellar syndrome [Recovered/Resolved]
  - Blood cholesterol increased [Recovered/Resolved]
  - Diplopia [Recovered/Resolved]
  - IIIrd nerve paralysis [Recovered/Resolved]
  - Blood triglycerides increased [Recovered/Resolved]
